FAERS Safety Report 7287505-3 (Version None)
Quarter: 2011Q1

REPORT INFORMATION
  Report Type: 
  Country: None (occurrence: None)
  Receive Date: 20110211
  Receipt Date: 20110209
  Transmission Date: 20110831
  Serious: No
  Sender: FDA-Public Use
  Company Number: US-PFIZER INC-2011029471

PATIENT

DRUGS (2)
  1. CHANTIX [Suspect]
     Indication: DEPRESSION
     Dosage: UNK; 2X/DAY
  2. CHANTIX [Suspect]
     Indication: ANXIETY

REACTIONS (1)
  - AGITATION [None]
